FAERS Safety Report 26090251 (Version 1)
Quarter: 2025Q4

REPORT INFORMATION
  Report Type: Report from Study
  Country: US (occurrence: US)
  Receive Date: 20251126
  Receipt Date: 20251126
  Transmission Date: 20260117
  Serious: No
  Sender: TOLMAR
  Company Number: US-Tolmar-TLM-2025-08672

PATIENT
  Age: 33 Year
  Sex: Female
  Weight: 61.28 kg

DRUGS (2)
  1. ELIGARD [Suspect]
     Active Substance: LEUPROLIDE ACETATE
     Indication: Hormone suppression therapy
     Dosage: BOX: 15548CUS/ 11-2026?SYRINGE A: 15548AUS/ 11-2026?SYRINGE B: 15548BUS/ 11-2026? SN: 7632389709938
  2. DEVICE [Suspect]
     Active Substance: DEVICE
     Indication: Hormone suppression therapy
     Dosage: BOX: 15548CUS/ 11-2026?SYRINGE A: 15548AUS/ 11-2026?SYRINGE B: 15548BUS/ 11-2026? SN: 7632389709938

REACTIONS (3)
  - Intercepted product preparation error [Unknown]
  - Device leakage [Unknown]
  - Device malfunction [Unknown]
